FAERS Safety Report 9276458 (Version 1)
Quarter: 2012Q4

REPORT INFORMATION
  Report Type: Spontaneous
  Country: IN (occurrence: None)
  Receive Date: 20121109
  Receipt Date: 20121109
  Transmission Date: 20130627
  Serious: Yes (Death, Other)
  Sender: FDA-Public Use
  Company Number: 2012S1000322

PATIENT
  Age: 11 Year
  Sex: Female

DRUGS (1)
  1. CUBICIN [Suspect]
     Indication: ACUTE MYELOID LEUKEMIA
     Route: 042
     Dates: start: 20120928

REACTIONS (6)
  - Pneumonia fungal [None]
  - Neutropenia [None]
  - Cardiac disorder [None]
  - Encephalopathy [None]
  - Cellulitis [None]
  - Pulmonary haemorrhage [None]
